FAERS Safety Report 24206294 (Version 1)
Quarter: 2024Q3

REPORT INFORMATION
  Report Type: Report from Study
  Country: ES (occurrence: ES)
  Receive Date: 20240813
  Receipt Date: 20240813
  Transmission Date: 20241017
  Serious: Yes (Hospitalization)
  Sender: TEVA
  Company Number: None

PATIENT
  Age: 90 Year
  Sex: Male

DRUGS (9)
  1. BISOPROLOL [Interacting]
     Active Substance: BISOPROLOL\BISOPROLOL FUMARATE
     Indication: Product used for unknown indication
     Dosage: 1 TABLET/24H; BISOPROLOL 28 TABLETS
     Route: 048
     Dates: start: 20221207, end: 20231103
  2. AMLODIPINE\HYDROCHLOROTHIAZIDE\OLMESARTAN [Interacting]
     Active Substance: AMLODIPINE\HYDROCHLOROTHIAZIDE\OLMESARTAN
     Indication: Product used for unknown indication
     Dosage: 1 TABLET/24H; OLMESARTAN/AMLODIPINE/HYDROCHLOROTHIAZIDE 40 MG/5 MG/25 MG 28 TABLETS
     Route: 048
     Dates: start: 20181102, end: 20231103
  3. CELECOXIB [Concomitant]
     Active Substance: CELECOXIB
     Indication: Product used for unknown indication
     Dosage: 1 CAPSULE/24H; CELECOXIB (1140A)
     Route: 048
     Dates: start: 20221216
  4. DOMPERIDONE [Concomitant]
     Active Substance: DOMPERIDONE
     Indication: Product used for unknown indication
     Dosage: DOMPERIDONE ORAL SOLUTION/SUSPENSION 200 ML 1 BOTTLE
     Route: 048
     Dates: start: 20230825
  5. FAMOTIDINE [Concomitant]
     Active Substance: FAMOTIDINE
     Indication: Product used for unknown indication
     Dosage: 1 TABLET/24H; FAMOTIDINA (2100A)
     Route: 048
     Dates: start: 20221013
  6. CARBIDOPA AND LEVODOPA [Concomitant]
     Active Substance: CARBIDOPA\LEVODOPA
     Indication: Product used for unknown indication
     Dosage: 1 TABLET/12H; LEVODOPA/CARBIDOPA 200 MG/50 MG
     Route: 048
     Dates: start: 20220111
  7. LORMETAZEPAM [Concomitant]
     Active Substance: LORMETAZEPAM
     Indication: Product used for unknown indication
     Dosage: 1 TABLET/24H; LORMETAZEPAM (88A)
     Route: 048
     Dates: start: 20221111
  8. BETAHISTINE [Concomitant]
     Active Substance: BETAHISTINE
     Indication: Product used for unknown indication
     Dosage: 1 TABLET/12H; BETAHISTINE 16 MG 30 TABLETS
     Route: 048
     Dates: start: 20191213
  9. PENTOXIFYLLINE [Interacting]
     Active Substance: PENTOXIFYLLINE
     Indication: Product used for unknown indication
     Dosage: 1 TABLET/12H; PENTOXIFYLLINE 60 TABLETS
     Route: 048
     Dates: start: 20230124, end: 20231117

REACTIONS (1)
  - Hypotension [Recovered/Resolved]

NARRATIVE: CASE EVENT DATE: 20231101
